FAERS Safety Report 5558064-8 (Version None)
Quarter: 2007Q4

REPORT INFORMATION
  Report Type: 
  Country: None (occurrence: None)
  Receive Date: 20071214
  Receipt Date: 20071129
  Transmission Date: 20080405
  Serious: Yes (Hospitalization)
  Sender: FDA-Public Use
  Company Number: US-RANBAXY-2007RR-11322

PATIENT

DRUGS (6)
  1. SIMVASTATIN TABLET 80MG [Suspect]
     Indication: HYPERCHOLESTEROLAEMIA
     Dosage: 40 MG, QD
  2. SIMVASTATIN TABLET 80MG [Suspect]
     Dosage: 80 MG, QD
  3. COLCHICINE [Suspect]
     Indication: BURSITIS
     Dosage: 0.6 MG, BID
  4. ASPIRIN [Concomitant]
     Dosage: 81 MG, QD
  5. HYDROCHLOROTHIAZIDE [Concomitant]
     Dosage: 25 MG, QD
  6. ALLOPURINOL [Concomitant]
     Dosage: 200 MG, QD

REACTIONS (2)
  - DRUG INTERACTION [None]
  - RHABDOMYOLYSIS [None]
